FAERS Safety Report 17661574 (Version 1)
Quarter: 2020Q2

REPORT INFORMATION
  Report Type: Spontaneous
  Country: US (occurrence: US)
  Receive Date: 20200410
  Receipt Date: 20200410
  Transmission Date: 20200713
  Serious: No
  Sender: FDA-Public Use
  Company Number: None

PATIENT
  Age: 67 Year
  Sex: Male

DRUGS (1)
  1. COSENTYX [Suspect]
     Active Substance: SECUKINUMAB
     Indication: PSORIASIS
     Dosage: INJECT 300MG (2 PENS) SUBCUTANEOUSLY EVERY WEEK FOR 5 WEEKS AS DIRECTED ?
     Route: 058
     Dates: start: 201805

REACTIONS (2)
  - Lung carcinoma cell type unspecified stage II [None]
  - Lung operation [None]
